FAERS Safety Report 15230033 (Version 1)
Quarter: 2018Q3

REPORT INFORMATION
  Report Type: Spontaneous
  Country: US (occurrence: US)
  Receive Date: 20180802
  Receipt Date: 20180802
  Transmission Date: 20181010
  Serious: Yes (Other)
  Sender: FDA-Public Use
  Company Number: US-ACCORD-062739

PATIENT
  Age: 63 Year
  Sex: Female
  Weight: 79.83 kg

DRUGS (22)
  1. ARIMIDEX [Concomitant]
     Active Substance: ANASTROZOLE
     Dates: start: 20151001, end: 20160121
  2. COLESTIPOL [Concomitant]
     Active Substance: COLESTIPOL
     Dosage: STRENGTH: 1 GM?2 TABLETS FOUR TIMES PER DAY WITH MEALS
  3. PANTOPRAZOLE [Concomitant]
     Active Substance: PANTOPRAZOLE
     Dosage: STRENGTH: 40 MG?1 TABLET ONCE A DAY
     Dates: start: 20150101
  4. TRAZODONE [Concomitant]
     Active Substance: TRAZODONE HYDROCHLORIDE
     Dosage: STRENGTH: 50 MG
     Dates: start: 20070101
  5. XANAX [Concomitant]
     Active Substance: ALPRAZOLAM
     Dosage: STRENGTH: 0.5 MG ?1 TABLET BID PRN + ALSO A 1 TABLET THREE TIMES A DAY
  6. LOSARTAN. [Concomitant]
     Active Substance: LOSARTAN
     Dosage: STRENGTH: 50 MG?1 TABLET ONCE A DAY
  7. MOTRIN [Concomitant]
     Active Substance: IBUPROFEN
     Dosage: STRENGTH: 40 MG/ML SUSPENSION
  8. DOCETAXEL ACCORD [Suspect]
     Active Substance: DOCETAXEL
     Indication: BREAST CANCER STAGE I
     Route: 042
     Dates: start: 20150901, end: 20151013
  9. LETROZOLE. [Concomitant]
     Active Substance: LETROZOLE
     Dates: start: 20160121, end: 20160201
  10. COZAAR [Concomitant]
     Active Substance: LOSARTAN POTASSIUM
     Dosage: STRENGTH: 25 MG?1 TABLET BID
  11. ATROPINE SULFATE/DIPHENOXYLATE HYDROCHLORIDE [Concomitant]
     Dosage: STRENGTH: 2.5?0.025
     Dates: start: 20150201
  12. TAXOL [Concomitant]
     Active Substance: PACLITAXEL
     Dates: start: 20150901, end: 20151013
  13. ADRIAMYCIN [Suspect]
     Active Substance: DOXORUBICIN HYDROCHLORIDE
     Indication: BREAST CANCER STAGE I
     Dates: start: 20150901, end: 20151013
  14. GABAPENTIN. [Concomitant]
     Active Substance: GABAPENTIN
     Dosage: STRENGTH: 600 MG?1 TABLET DAILY
     Dates: start: 20050101
  15. OMEGA 3 [Concomitant]
     Active Substance: OMEGA-3 FATTY ACIDS
     Dosage: STRENGTH: 1000 MG?1 CAPSULE ONCE A DAY
  16. POTASSIUM [Concomitant]
     Active Substance: POTASSIUM
     Dosage: STRENGTH: 20 MEQ?1 TABLET PER DAY
     Dates: start: 20150101
  17. CRESTOR [Concomitant]
     Active Substance: ROSUVASTATIN CALCIUM
     Dosage: STRENGTH: 5 MG?1 TABLET ONCE A DAY
     Dates: start: 20070101
  18. CYANOCOBALAMIN. [Concomitant]
     Active Substance: CYANOCOBALAMIN
     Dosage: STRENGTH: 1000 MCG?1 TABLET UNDER THE TONGUE AND ALLOW TO DISSOLVE ONCE A DAY
  19. CYTOXAN [Suspect]
     Active Substance: CYCLOPHOSPHAMIDE
     Indication: BREAST CANCER STAGE I
     Dates: start: 20150901, end: 20151013
  20. WELLBUTRIN [Concomitant]
     Active Substance: BUPROPION HYDROCHLORIDE
     Dosage: STRENGTH: 150 MG?1 TABLET DAILY
     Dates: start: 20110101
  21. EXEMESTANE. [Concomitant]
     Active Substance: EXEMESTANE
     Dates: start: 20160201, end: 20160501
  22. MAGNESIUM GLUCONATE [Concomitant]
     Active Substance: MAGNESIUM GLUCONATE
     Dosage: STRENGTH: 500 MG?1 TABLET TWICE A DAY

REACTIONS (1)
  - Alopecia [Not Recovered/Not Resolved]

NARRATIVE: CASE EVENT DATE: 201604
